FAERS Safety Report 8206265-2 (Version None)
Quarter: 2012Q1

REPORT INFORMATION
  Report Type: 
  Country: None (occurrence: None)
  Receive Date: 20120313
  Receipt Date: 20120305
  Transmission Date: 20120608
  Serious: Yes (Other)
  Sender: FDA-Public Use
  Company Number: PHHY2012BR019936

PATIENT
  Sex: Female

DRUGS (1)
  1. TEGRETOL-XR [Suspect]
     Dosage: 2.5 DF, BID

REACTIONS (4)
  - CONVULSION [None]
  - INJURY [None]
  - FEAR [None]
  - FALL [None]
